FAERS Safety Report 7239459-3 (Version None)
Quarter: 2011Q1

REPORT INFORMATION
  Report Type: 
  Country: None (occurrence: None)
  Receive Date: 20110121
  Receipt Date: 20110119
  Transmission Date: 20110831
  Serious: Yes (Hospitalization)
  Sender: FDA-Public Use
  Company Number: US-ABBOTT-10P-163-0692419-00

PATIENT
  Sex: Male
  Weight: 110.32 kg

DRUGS (3)
  1. HUMIRA [Suspect]
     Route: 058
     Dates: start: 20101201
  2. HUMIRA [Suspect]
     Indication: PSORIATIC ARTHROPATHY
     Route: 058
  3. ATENOLOL [Concomitant]
     Indication: HYPERTENSION

REACTIONS (2)
  - PULMONARY EMBOLISM [None]
  - CHEST DISCOMFORT [None]
